FAERS Safety Report 24928460 (Version 1)
Quarter: 2025Q1

REPORT INFORMATION
  Report Type: Spontaneous
  Country: FR (occurrence: FR)
  Receive Date: 20250205
  Receipt Date: 20250205
  Transmission Date: 20250408
  Serious: Yes (Other)
  Sender: LUNDBECK
  Company Number: None

PATIENT

DRUGS (2)
  1. SABRIL [Suspect]
     Active Substance: VIGABATRIN
     Indication: Epilepsy
     Dosage: 250 MILLIGRAM
     Route: 048
     Dates: start: 2004
  2. CARBAMAZEPINE [Suspect]
     Active Substance: CARBAMAZEPINE
     Indication: Epilepsy
     Dosage: 1200 MILLIGRAM
     Route: 048
     Dates: start: 2004

REACTIONS (2)
  - Inappropriate antidiuretic hormone secretion [Not Recovered/Not Resolved]
  - Hyponatraemia [Not Recovered/Not Resolved]

NARRATIVE: CASE EVENT DATE: 20190101
